FAERS Safety Report 6144442-5 (Version None)
Quarter: 2009Q2

REPORT INFORMATION
  Report Type: 
  Country: None (occurrence: None)
  Receive Date: 20090406
  Receipt Date: 20090323
  Transmission Date: 20091009
  Serious: Yes (Hospitalization)
  Sender: FDA-Public Use
  Company Number: CH-ROCHE-623369

PATIENT
  Age: 16 Year
  Sex: Female

DRUGS (3)
  1. ROCEPHIN [Suspect]
     Indication: URINARY TRACT INFECTION
     Dosage: ROUTE: INTRAVENOUS BOLUS
     Route: 042
     Dates: start: 20081112, end: 20081118
  2. TARGOCID [Suspect]
     Indication: URINARY TRACT INFECTION
     Dosage: FORM: VIALS, ROUTE: INTRAVENOUS DRIP
     Route: 042
     Dates: start: 20081105, end: 20081111
  3. CIPROFLOXACIN HCL [Concomitant]
     Indication: URINARY TRACT INFECTION
     Route: 048
     Dates: start: 20081020, end: 20081026

REACTIONS (6)
  - DRUG RASH WITH EOSINOPHILIA AND SYSTEMIC SYMPTOMS [None]
  - EOSINOPHILIA [None]
  - HEPATOCELLULAR INJURY [None]
  - PLEURAL EFFUSION [None]
  - PYREXIA [None]
  - RASH MACULO-PAPULAR [None]
